FAERS Safety Report 7011739-6 (Version None)
Quarter: 2010Q3

REPORT INFORMATION
  Report Type: 
  Country: None (occurrence: None)
  Receive Date: 20100923
  Receipt Date: 20090521
  Transmission Date: 20110219
  Serious: No
  Sender: FDA-Public Use
  Company Number: US-WYE-H09483009

PATIENT
  Age: 90 Year
  Sex: Female

DRUGS (3)
  1. PREMARIN [Suspect]
     Indication: PRODUCT USED FOR UNKNOWN INDICATION
     Dosage: SMALL AMOUNT EXTERNALLY DAILY
     Route: 061
     Dates: start: 20090401, end: 20090428
  2. CARBIDOPA [Concomitant]
     Indication: PARKINSON'S DISEASE
  3. ENTACAPONE [Concomitant]
     Indication: PARKINSON'S DISEASE

REACTIONS (4)
  - HAIR COLOUR CHANGES [None]
  - HOT FLUSH [None]
  - NAUSEA [None]
  - VOMITING [None]
